FAERS Safety Report 9829243 (Version 1)
Quarter: 2014Q1

REPORT INFORMATION
  Report Type: Report from Study
  Country: US (occurrence: US)
  Receive Date: 20140120
  Receipt Date: 20140120
  Transmission Date: 20141002
  Serious: Yes (Hospitalization)
  Sender: FDA-Public Use
  Company Number: US-ROCHE-1330523

PATIENT
  Age: 64 Year
  Sex: Female
  Weight: 72.64 kg

DRUGS (9)
  1. MYCOPHENOLATE MOFETIL [Suspect]
     Indication: DERMATOMYOSITIS
     Route: 048
  2. AMOXICILLIN [Concomitant]
     Route: 048
  3. GABAPENTIN [Concomitant]
  4. SUCRALFATE [Concomitant]
     Route: 065
  5. SUCRALFATE [Concomitant]
     Dosage: 1 GM/10 ML, 2 TEASPOONFULS 4 TIMES DAILY.
     Route: 065
  6. MAGNESIUM OXIDE [Concomitant]
  7. PANTOPRAZOLE SODIUM [Concomitant]
     Route: 048
  8. OXYCODONE HYDROCHLORIDE [Concomitant]
     Dosage: 1-2 TABLETS EVERY 4 TO 6 HRS.
     Route: 048
  9. LEVOTHROID [Concomitant]

REACTIONS (1)
  - Wernicke^s encephalopathy [Not Recovered/Not Resolved]
